FAERS Safety Report 9769004 (Version 2)
Quarter: 2013Q4

REPORT INFORMATION
  Report Type: Spontaneous
  Country: US (occurrence: US)
  Receive Date: 20131218
  Receipt Date: 20131218
  Transmission Date: 20140711
  Serious: Yes (Other)
  Sender: FDA-Public Use
  Company Number: US-GE HEALTHCARE MEDICAL DIAGNOSTICS-OSCN-PR-1004S-0104

PATIENT
  Sex: Female

DRUGS (3)
  1. GADOLINIUM (UNSPECIFIED) [Suspect]
     Indication: ARTERIOVENOUS GRAFT
  2. GADOLINIUM (UNSPECIFIED) [Suspect]
     Indication: SUBCLAVIAN ARTERY STENOSIS
  3. GADOLINIUM (UNSPECIFIED) [Suspect]
     Indication: THROMBECTOMY

REACTIONS (1)
  - Nephrogenic systemic fibrosis [Not Recovered/Not Resolved]
